FAERS Safety Report 18494240 (Version 1)
Quarter: 2020Q4

REPORT INFORMATION
  Report Type: Spontaneous
  Country: DK (occurrence: DK)
  Receive Date: 20201112
  Receipt Date: 20201112
  Transmission Date: 20210114
  Serious: Yes (Hospitalization, Disabling)
  Sender: FDA-Public Use
  Company Number: DK-TEVA-2020-DK-1847386

PATIENT
  Age: 44 Year
  Sex: Male

DRUGS (1)
  1. ANTABUS [Suspect]
     Active Substance: DISULFIRAM
     Indication: ALCOHOL ABUSE
     Dosage: 1600 MG,DOSAGE: 2 TABLETS DAY 1 AND 4.,RECEIVED ANTABUS ON OCTOBER 11, 15, 18, 22, 25 AND 29, 2019.
     Route: 048
     Dates: start: 20191011, end: 20191029

REACTIONS (7)
  - Hepatitis acute [Recovered/Resolved]
  - Liver transplant [Recovered/Resolved]
  - Acute hepatic failure [Recovered/Resolved]
  - Abdominal pain [Unknown]
  - Chromaturia [Unknown]
  - Ocular icterus [Unknown]
  - Fatigue [Unknown]

NARRATIVE: CASE EVENT DATE: 20191031
